FAERS Safety Report 15648698 (Version 1)
Quarter: 2018Q4

REPORT INFORMATION
  Report Type: Spontaneous
  Country: US (occurrence: US)
  Receive Date: 20181122
  Receipt Date: 20181122
  Transmission Date: 20190205
  Serious: Yes (Other)
  Sender: FDA-Public Use
  Company Number: US-TEVA-2018-US-976826

PATIENT
  Sex: Female

DRUGS (1)
  1. COPAXONE [Suspect]
     Active Substance: GLATIRAMER ACETATE
     Route: 065

REACTIONS (6)
  - Chest pain [Unknown]
  - Impaired work ability [Unknown]
  - Hypoaesthesia [Unknown]
  - Gait inability [Unknown]
  - Anxiety [Unknown]
  - Feeling abnormal [Unknown]
